FAERS Safety Report 7045980-3 (Version None)
Quarter: 2010Q4

REPORT INFORMATION
  Report Type: 
  Country: None (occurrence: None)
  Receive Date: 20101014
  Receipt Date: 20101006
  Transmission Date: 20110411
  Serious: Yes (Hospitalization)
  Sender: FDA-Public Use
  Company Number: FR-PFIZER INC-2010128837

PATIENT
  Age: 55 Year
  Sex: Male

DRUGS (9)
  1. ATARAX [Suspect]
     Dosage: 25 MG, 3X/DAY
     Route: 048
  2. PARKINANE [Suspect]
     Dosage: 5 MG, 1X/DAY
     Route: 048
  3. PIPORTIL LONGUM-4 [Suspect]
     Indication: PSYCHOTIC DISORDER
     Dosage: 25 MG, MONTHLY
     Route: 030
  4. ESPERAL [Concomitant]
     Dosage: UNK
  5. EUPHYLLINE [Concomitant]
     Dosage: UNK
  6. SERESTA [Concomitant]
     Dosage: UNK
  7. DILTIAZEM [Concomitant]
     Dosage: UNK
  8. ZADITEN [Concomitant]
     Dosage: UNK
  9. SERETIDE [Concomitant]
     Dosage: UNK

REACTIONS (1)
  - URINARY RETENTION [None]
